FAERS Safety Report 25660964 (Version 1)
Quarter: 2025Q3

REPORT INFORMATION
  Report Type: Spontaneous
  Country: US (occurrence: None)
  Receive Date: 20250807
  Receipt Date: 20250807
  Transmission Date: 20251020
  Serious: No
  Sender: FDA-CTU
  Company Number: None

PATIENT
  Sex: Female

DRUGS (4)
  1. DEVICE [Suspect]
     Active Substance: DEVICE
     Indication: Pulmonary arterial hypertension
     Dosage: FREQUENCY : EVERY MINUTE;?
     Route: 042
     Dates: start: 20220920
  2. REMODULIN [Suspect]
     Active Substance: TREPROSTINIL
  3. WINREVAIR [Concomitant]
     Active Substance: SOTATERCEPT-CSRK
  4. AMBRISENTAN [Concomitant]
     Active Substance: AMBRISENTAN

REACTIONS (2)
  - Device infusion issue [None]
  - Therapy interrupted [None]
